FAERS Safety Report 7569729-0 (Version None)
Quarter: 2011Q2

REPORT INFORMATION
  Report Type: 
  Country: None (occurrence: None)
  Receive Date: 20110617
  Receipt Date: 20110210
  Transmission Date: 20111010
  Serious: Yes (Other)
  Sender: FDA-Public Use
  Company Number: DSA_45038_2011

PATIENT

DRUGS (1)
  1. TETRABENAZINE [Suspect]
     Indication: HUNTINGTON'S DISEASE
     Dosage: (UNSPECIFIED TITRATING DOSE), (12.5 MG QD)

REACTIONS (1)
  - AGITATION [None]
